FAERS Safety Report 5581853-0 (Version None)
Quarter: 2008Q1

REPORT INFORMATION
  Report Type: 
  Country: None (occurrence: None)
  Receive Date: 20080104
  Receipt Date: 20071225
  Transmission Date: 20080703
  Serious: Yes (Other)
  Sender: FDA-Public Use
  Company Number: JP-PFIZER INC-2007108672

PATIENT
  Age: 70 Year
  Sex: Male

DRUGS (2)
  1. CEFPODOXIME PROXETIL [Suspect]
     Route: 048
  2. CEFAZOLIN SODIUM [Suspect]
     Route: 042

REACTIONS (2)
  - GASTROENTERITIS STAPHYLOCOCCAL [None]
  - SEPTIC SHOCK [None]
